FAERS Safety Report 19575839 (Version 1)
Quarter: 2021Q3

REPORT INFORMATION
  Report Type: Spontaneous
  Country: US (occurrence: US)
  Receive Date: 20210717
  Receipt Date: 20210717
  Transmission Date: 20211014
  Serious: Yes (Other)
  Sender: FDA-Public Use
  Company Number: None

PATIENT
  Age: 49 Year
  Sex: Female
  Weight: 76.5 kg

DRUGS (9)
  1. NEUTROGENA ULTRA SHEER BODY MIST SUNSCREEN BROAD SPECTRUM SPF 30 (AVO\HOM\OCTI\OCTO) [Suspect]
     Active Substance: AVOBENZONE\HOMOSALATE\OCTISALATE\OCTOCRYLENE
     Indication: PROPHYLAXIS AGAINST SOLAR RADIATION
     Dosage: ?          OTHER STRENGTH:SPF 30;QUANTITY:1 OUNCE(S);?
     Route: 061
     Dates: start: 20210703, end: 20210709
  2. COENZYME Q10 [Concomitant]
     Active Substance: DIETARY SUPPLEMENT\UBIDECARENONE
  3. THYROID MEDS [Concomitant]
  4. FISH OIL [Concomitant]
     Active Substance: FISH OIL
  5. MULTI [Concomitant]
  6. CALCIUM [Concomitant]
     Active Substance: CALCIUM
  7. VIVELLE?DOT [Concomitant]
     Active Substance: ESTRADIOL
  8. VITAMIN D3 [Concomitant]
     Active Substance: CHOLECALCIFEROL
  9. NEUTROGENA ULTRA SHEER BODY MIST SUNSCREEN BROAD SPECTRUM SPF 45 (AVO\HOM\OCTI\OCTO) [Suspect]
     Active Substance: AVOBENZONE\HOMOSALATE\OCTISALATE\OCTOCRYLENE
     Indication: PROPHYLAXIS AGAINST SOLAR RADIATION
     Dosage: ?          OTHER STRENGTH:?;?
     Route: 061
     Dates: start: 20210703, end: 20210709

REACTIONS (1)
  - Application site rash [None]

NARRATIVE: CASE EVENT DATE: 20210703
